FAERS Safety Report 4380531-3 (Version None)
Quarter: 2004Q2

REPORT INFORMATION
  Report Type: 
  Country: None (occurrence: None)
  Receive Date: 20040614
  Receipt Date: 20040318
  Transmission Date: 20050107
  Serious: Yes (Life-Threatening, Hospitalization, Other)
  Sender: FDA-Public Use
  Company Number: M04-341-085

PATIENT
  Age: 80 Year
  Sex: Female
  Weight: 85 kg

DRUGS (1)
  1. VELCADE [Suspect]
     Indication: MULTIPLE MYELOMA
     Dates: start: 20040217, end: 20040220

REACTIONS (4)
  - DEHYDRATION [None]
  - DIARRHOEA [None]
  - PERFORMANCE STATUS DECREASED [None]
  - RENAL FAILURE ACUTE [None]
